FAERS Safety Report 4692385-6 (Version None)
Quarter: 2005Q2

REPORT INFORMATION
  Report Type: 
  Country: None (occurrence: None)
  Receive Date: 20050616
  Receipt Date: 20050602
  Transmission Date: 20051028
  Serious: No
  Sender: FDA-Public Use
  Company Number: CA_050508210

PATIENT
  Sex: Female

DRUGS (1)
  1. EVISTA [Suspect]

REACTIONS (5)
  - DISCOMFORT [None]
  - LIPOMA [None]
  - MUSCLE SPASMS [None]
  - PAIN [None]
  - SENSORY DISTURBANCE [None]
